FAERS Safety Report 11062111 (Version 1)
Quarter: 2015Q2

REPORT INFORMATION
  Report Type: Spontaneous
  Country: NL (occurrence: NL)
  Receive Date: 20150424
  Receipt Date: 20150424
  Transmission Date: 20150821
  Serious: Yes (Hospitalization, Other)
  Sender: FDA-Public Use
  Company Number: NL-ASTRAZENECA-2015SE36788

PATIENT
  Age: 45 Year
  Sex: Female

DRUGS (9)
  1. SEVELAMER [Interacting]
     Active Substance: SEVELAMER
     Indication: HYPERPHOSPHATAEMIA
     Route: 048
  2. IRBESARTAN. [Concomitant]
     Active Substance: IRBESARTAN
  3. ATORVASTATIN [Concomitant]
     Active Substance: ATORVASTATIN
  4. QUETIAPINE XR [Suspect]
     Active Substance: QUETIAPINE
     Indication: BIPOLAR DISORDER
     Route: 048
  5. FUROSEMIDE. [Concomitant]
     Active Substance: FUROSEMIDE
  6. IPRATROPIUM [Concomitant]
     Active Substance: IPRATROPIUM
  7. INSULIN [Concomitant]
     Active Substance: INSULIN NOS
  8. SODIUM HYDROGEN CARBONATE [Concomitant]
     Active Substance: SODIUM BICARBONATE
  9. SODIUM POLYSTYRENE SULFONATE. [Interacting]
     Active Substance: SODIUM POLYSTYRENE SULFONATE
     Indication: HYPERKALAEMIA
     Route: 048

REACTIONS (4)
  - Antipsychotic drug level below therapeutic [Recovered/Resolved]
  - Diabetes mellitus inadequate control [Unknown]
  - Drug interaction [Unknown]
  - Renal impairment [Unknown]
